FAERS Safety Report 6754925-2 (Version None)
Quarter: 2010Q2

REPORT INFORMATION
  Report Type: 
  Country: None (occurrence: None)
  Receive Date: 20100524
  Receipt Date: 20100310
  Transmission Date: 20101027
  Serious: No
  Sender: FDA-Public Use
  Company Number: 008592

PATIENT
  Sex: Male

DRUGS (4)
  1. CIMZIA [Suspect]
     Dosage: (400 MG, ONCE A MONTH SUBCUTANEOUS, (400 MG, ONCE MONTHLY SUBCUTANEOUS)
     Route: 058
     Dates: end: 20090701
  2. CIMZIA [Suspect]
     Dosage: (400 MG, ONCE A MONTH SUBCUTANEOUS, (400 MG, ONCE MONTHLY SUBCUTANEOUS)
     Route: 058
     Dates: start: 20100310
  3. ASACOL [Concomitant]
  4. IMURAN [Concomitant]

REACTIONS (1)
  - EXPIRED DRUG ADMINISTERED [None]
